FAERS Safety Report 13834458 (Version 2)
Quarter: 2018Q1

REPORT INFORMATION
  Report Type: Report from Study
  Country: GB (occurrence: GB)
  Receive Date: 20170804
  Receipt Date: 20180124
  Transmission Date: 20180508
  Serious: Yes (Death, Hospitalization)
  Sender: FDA-Public Use
  Company Number: GB-AMGEN-GBRNI2017116581

PATIENT
  Age: 69 Year
  Sex: Female

DRUGS (2)
  1. ETANERCEPT [Suspect]
     Active Substance: ETANERCEPT
     Indication: RHEUMATOID ARTHRITIS
     Dosage: UNK
     Route: 058
     Dates: start: 20111015, end: 20111209
  2. METHOTREXATE. [Concomitant]
     Active Substance: METHOTREXATE
     Indication: RHEUMATOID ARTHRITIS
     Dosage: UNK

REACTIONS (7)
  - Asthma [Fatal]
  - Diverticulum [Fatal]
  - Myocardial ischaemia [Fatal]
  - Abdominal sepsis [Fatal]
  - Rheumatoid arthritis [Fatal]
  - Peritonitis [Fatal]
  - Strangulated hernia [Fatal]

NARRATIVE: CASE EVENT DATE: 2013
